FAERS Safety Report 15936925 (Version 3)
Quarter: 2019Q2

REPORT INFORMATION
  Report Type: Report from Study
  Country: US (occurrence: US)
  Receive Date: 20190208
  Receipt Date: 20190430
  Transmission Date: 20190711
  Serious: Yes (Other)
  Sender: FDA-Public Use
  Company Number: US-SA-2019SA036764

PATIENT
  Age: 50 Year
  Sex: Male

DRUGS (1)
  1. INSULIN GLARGINE [Suspect]
     Active Substance: INSULIN GLARGINE
     Dosage: 20 U, QD
     Route: 065

REACTIONS (6)
  - Back disorder [Recovering/Resolving]
  - Hepatic cirrhosis [Recovering/Resolving]
  - Diabetes mellitus [Recovering/Resolving]
  - Musculoskeletal discomfort [Recovering/Resolving]
  - Disturbance in attention [Recovering/Resolving]
  - Pain [Recovering/Resolving]
